FAERS Safety Report 9888924 (Version 1)
Quarter: 2014Q1

REPORT INFORMATION
  Report Type: Spontaneous
  Country: US (occurrence: US)
  Receive Date: 20140211
  Receipt Date: 20140211
  Transmission Date: 20141002
  Serious: No
  Sender: FDA-Public Use
  Company Number: US-BAXTER-2012BAX005324

PATIENT
  Sex: Female
  Weight: 57.7 kg

DRUGS (9)
  1. BEBULIN [Suspect]
     Indication: FACTOR X DEFICIENCY
     Dosage: 5193 UNITS
     Route: 042
     Dates: start: 20120425, end: 20120425
  2. BEBULIN [Suspect]
     Dosage: 5193 UNITS
     Route: 042
     Dates: start: 20120509, end: 20120509
  3. LISINOPRIL [Concomitant]
     Indication: PRODUCT USED FOR UNKNOWN INDICATION
     Route: 048
  4. ATORVASTATIN [Concomitant]
     Indication: PRODUCT USED FOR UNKNOWN INDICATION
     Route: 048
  5. FOSAMAX [Concomitant]
     Indication: PRODUCT USED FOR UNKNOWN INDICATION
     Route: 048
  6. CALCIUM [Concomitant]
     Indication: PRODUCT USED FOR UNKNOWN INDICATION
     Route: 048
  7. VITAMIN D [Concomitant]
     Indication: PRODUCT USED FOR UNKNOWN INDICATION
     Dosage: 2000 UNITS
     Route: 048
  8. SODIUM CHLORIDE [Concomitant]
     Indication: CATHETER MANAGEMENT
     Route: 042
  9. HEPARIN [Concomitant]
     Indication: CATHETER MANAGEMENT
     Dosage: 100 U/ML CONCENTRATION
     Route: 042

REACTIONS (2)
  - Pharyngeal oedema [Recovering/Resolving]
  - Insomnia [Unknown]
